FAERS Safety Report 9380982 (Version 2)
Quarter: 2013Q3

REPORT INFORMATION
  Report Type: Spontaneous
  Country: US (occurrence: US)
  Receive Date: 20130703
  Receipt Date: 20130726
  Transmission Date: 20140515
  Serious: Yes (Hospitalization)
  Sender: FDA-Public Use
  Company Number: US-009507513-1307USA000870

PATIENT
  Age: 23 Year
  Sex: Female

DRUGS (3)
  1. NUVARING [Suspect]
     Indication: CONTRACEPTION
     Dosage: 0.015MG/0.12MG, Q3W
     Route: 067
     Dates: start: 201212, end: 201304
  2. NUVARING [Suspect]
     Dosage: 0.015MG/0.12MG, Q3W
     Route: 067
     Dates: start: 201304, end: 20130613
  3. METFORMIN [Concomitant]

REACTIONS (5)
  - Pelvic pain [Recovered/Resolved]
  - Abdominal pain [Recovered/Resolved]
  - Rash [Recovered/Resolved]
  - Arthralgia [Recovered/Resolved]
  - Joint swelling [Recovered/Resolved]
